FAERS Safety Report 7574276-6 (Version None)
Quarter: 2011Q2

REPORT INFORMATION
  Report Type: 
  Country: None (occurrence: None)
  Receive Date: 20110627
  Receipt Date: 20110520
  Transmission Date: 20111010
  Serious: No
  Sender: FDA-Public Use
  Company Number: US-BAYER-2011-044662

PATIENT
  Sex: Female

DRUGS (1)
  1. ALEVE-D SINUS + COLD [Suspect]
     Indication: NASOPHARYNGITIS
     Dosage: UNK, BID
     Route: 048
     Dates: end: 20110501

REACTIONS (1)
  - INSOMNIA [None]
